FAERS Safety Report 15939631 (Version 3)
Quarter: 2019Q2

REPORT INFORMATION
  Report Type: Spontaneous
  Country: US (occurrence: US)
  Receive Date: 20190208
  Receipt Date: 20190418
  Transmission Date: 20190711
  Serious: Yes (Other)
  Sender: FDA-Public Use
  Company Number: US-ASTRAZENECA-2018SF22576

PATIENT
  Age: 14585 Day
  Sex: Female
  Weight: 59.9 kg

DRUGS (35)
  1. NEXIUM 24HR [Suspect]
     Active Substance: ESOMEPRAZOLE MAGNESIUM
     Indication: GASTROOESOPHAGEAL REFLUX DISEASE
     Route: 048
     Dates: start: 2010, end: 2017
  2. MEGESTROL [Concomitant]
     Active Substance: MEGESTROL
  3. RENA-VITE [Concomitant]
     Active Substance: ASCORBIC ACID\BIOTIN\CALCIUM PANTOTHENATE\CYANOCOBALAMIN\FOLIC ACID\NIACINAMIDE\PYRIDOXINE HYDROCHLORIDE\RIBOFLAVIN\THIAMINE MONONITRATE
  4. CARVEDILOL. [Concomitant]
     Active Substance: CARVEDILOL
     Indication: CHRONIC OBSTRUCTIVE PULMONARY DISEASE
  5. RIFAMPIN. [Concomitant]
     Active Substance: RIFAMPIN
  6. PAXIL [Concomitant]
     Active Substance: PAROXETINE HYDROCHLORIDE
  7. PEPCID [Concomitant]
     Active Substance: FAMOTIDINE
  8. NEXIUM [Suspect]
     Active Substance: ESOMEPRAZOLE MAGNESIUM
     Indication: GASTROOESOPHAGEAL REFLUX DISEASE
     Route: 048
     Dates: start: 2010, end: 2017
  9. COREG [Concomitant]
     Active Substance: CARVEDILOL
  10. AMOXICILLIN. [Concomitant]
     Active Substance: AMOXICILLIN
  11. ZOFRAN [Concomitant]
     Active Substance: ONDANSETRON HYDROCHLORIDE
  12. PHENERGAN [Concomitant]
     Active Substance: PROMETHAZINE HYDROCHLORIDE
  13. SYMBICORT [Concomitant]
     Active Substance: BUDESONIDE\FORMOTEROL FUMARATE DIHYDRATE
     Indication: CHRONIC OBSTRUCTIVE PULMONARY DISEASE
  14. PRILOSEC OTC [Suspect]
     Active Substance: OMEPRAZOLE MAGNESIUM
     Route: 048
     Dates: start: 2010, end: 2017
  15. POTASSIUM [Concomitant]
     Active Substance: POTASSIUM
  16. FENTANYL. [Concomitant]
     Active Substance: FENTANYL
  17. AMLODIPINE/BENAZEPRIL [Concomitant]
     Active Substance: AMLODIPINE BESYLATE\BENAZEPRIL HYDROCHLORIDE
  18. CEPHALEXIN. [Concomitant]
     Active Substance: CEPHALEXIN
  19. NYSTATIN. [Concomitant]
     Active Substance: NYSTATIN
  20. ONDANSETRON [Concomitant]
     Active Substance: ONDANSETRON
  21. LACTULOSE. [Concomitant]
     Active Substance: LACTULOSE
  22. LOTREL [Concomitant]
     Active Substance: AMLODIPINE BESYLATE\BENAZEPRIL HYDROCHLORIDE
  23. SENSIPAR [Concomitant]
     Active Substance: CINACALCET HYDROCHLORIDE
     Indication: BLOOD CALCIUM DECREASED
  24. PRILOSEC [Suspect]
     Active Substance: OMEPRAZOLE MAGNESIUM
     Indication: GASTROOESOPHAGEAL REFLUX DISEASE
     Route: 048
     Dates: start: 2010, end: 2017
  25. TORADOL [Concomitant]
     Active Substance: KETOROLAC TROMETHAMINE
  26. LEVOFLOXACIN. [Concomitant]
     Active Substance: LEVOFLOXACIN
  27. CYANOCOBALAMIN. [Concomitant]
     Active Substance: CYANOCOBALAMIN
  28. PROTONIX [Suspect]
     Active Substance: PANTOPRAZOLE SODIUM
     Indication: GASTROOESOPHAGEAL REFLUX DISEASE
     Route: 065
     Dates: start: 2010, end: 2017
  29. RENVELA [Concomitant]
     Active Substance: SEVELAMER CARBONATE
  30. FOLIC ACID. [Concomitant]
     Active Substance: FOLIC ACID
  31. VITAMIN D3 [Concomitant]
     Active Substance: CHOLECALCIFEROL
  32. MUPIROCIN. [Concomitant]
     Active Substance: MUPIROCIN
  33. PROAIR HFA [Concomitant]
     Active Substance: ALBUTEROL SULFATE
  34. HYDROCODONE BITARTRATE AND ACETAMINOPHEN [Concomitant]
     Active Substance: ACETAMINOPHEN\HYDROCODONE BITARTRATE
  35. CLONIDINE HYDROCHLORIDE. [Concomitant]
     Active Substance: CLONIDINE HYDROCHLORIDE

REACTIONS (4)
  - Acute kidney injury [Unknown]
  - Chronic kidney disease [Unknown]
  - Renal failure [Unknown]
  - End stage renal disease [Not Recovered/Not Resolved]

NARRATIVE: CASE EVENT DATE: 20130206
